FAERS Safety Report 22870299 (Version 3)
Quarter: 2024Q4

REPORT INFORMATION
  Report Type: Spontaneous
  Country: US (occurrence: US)
  Receive Date: 20230827
  Receipt Date: 20241122
  Transmission Date: 20250115
  Serious: No
  Sender: SANOFI AVENTIS
  Company Number: US-SA-SAC20230822000140

PATIENT
  Age: 54 Year
  Sex: Female

DRUGS (66)
  1. DUPIXENT [Suspect]
     Active Substance: DUPILUMAB
     Indication: Asthma
     Dosage: 300 MG, QOW
     Route: 058
     Dates: start: 20210423
  2. DUPIXENT [Suspect]
     Active Substance: DUPILUMAB
     Indication: Rheumatoid arthritis
  3. ENBREL [Concomitant]
     Active Substance: ETANERCEPT
  4. AMOXICILLIN\CLAVULANIC ACID [Concomitant]
     Active Substance: AMOXICILLIN\CLAVULANIC ACID
  5. ATORVASTATIN [Concomitant]
     Active Substance: ATORVASTATIN
  6. AZELASTINE [Concomitant]
     Active Substance: AZELASTINE
  7. AZITHROMYCIN [Concomitant]
     Active Substance: AZITHROMYCIN
  8. BENZONATATE [Concomitant]
     Active Substance: BENZONATATE
  9. BUDESONIDE [Concomitant]
     Active Substance: BUDESONIDE
  10. BUSPIRONE [Concomitant]
     Active Substance: BUSPIRONE HYDROCHLORIDE
  11. CEPHALEXIN [Concomitant]
     Active Substance: CEPHALEXIN
  12. CLONAZEPAM [Concomitant]
     Active Substance: CLONAZEPAM
  13. CODEINE\GUAIFENESIN [Concomitant]
     Active Substance: CODEINE\GUAIFENESIN
  14. DEPO-MEDROL [Concomitant]
     Active Substance: METHYLPREDNISOLONE ACETATE
  15. CHOLESTYRAMINE [Concomitant]
     Active Substance: CHOLESTYRAMINE
  16. DICLOFENAC [Concomitant]
     Active Substance: DICLOFENAC
  17. DULOXETINE [Concomitant]
     Active Substance: DULOXETINE
  18. ESTRADIOL [Concomitant]
     Active Substance: ESTRADIOL
  19. FAMOTIDINE [Concomitant]
     Active Substance: FAMOTIDINE
  20. FLUCONAZOLE [Concomitant]
     Active Substance: FLUCONAZOLE
  21. FLUTICASONE [Concomitant]
     Active Substance: FLUTICASONE
  22. FOLIC ACID [Concomitant]
     Active Substance: FOLIC ACID
  23. GABAPENTIN [Concomitant]
     Active Substance: GABAPENTIN
  24. INCRUSE ELLIPTA [Concomitant]
     Active Substance: UMECLIDINIUM BROMIDE
  25. KENALOG [Concomitant]
     Active Substance: TRIAMCINOLONE ACETONIDE
  26. KETOCONAZOLE [Concomitant]
     Active Substance: KETOCONAZOLE
  27. KETOROLAC [Concomitant]
     Active Substance: KETOROLAC TROMETHAMINE
  28. LAMOTRIGINE [Concomitant]
     Active Substance: LAMOTRIGINE
  29. LEVALBUTEROL [Concomitant]
     Active Substance: LEVALBUTEROL
  30. LEVOFLOXACIN [Concomitant]
     Active Substance: LEVOFLOXACIN
  31. LOSARTAN POTASSIUM [Concomitant]
     Active Substance: LOSARTAN POTASSIUM
  32. LYRICA [Concomitant]
     Active Substance: PREGABALIN
  33. METHOTREXATE [Concomitant]
     Active Substance: METHOTREXATE
  34. MONTELUKAST [Concomitant]
     Active Substance: MONTELUKAST
  35. MUCINEX [Concomitant]
     Active Substance: GUAIFENESIN
  36. PHENTERMINE [Concomitant]
     Active Substance: PHENTERMINE\PHENTERMINE HYDROCHLORIDE
  37. PREDNISONE [Concomitant]
     Active Substance: PREDNISONE
  38. PREGABALIN [Concomitant]
     Active Substance: PREGABALIN
  39. PROAIR HFA [Concomitant]
     Active Substance: ALBUTEROL SULFATE
  40. ROPINIROLE [Concomitant]
     Active Substance: ROPINIROLE
  41. SERTRALINE [Concomitant]
     Active Substance: SERTRALINE HYDROCHLORIDE
  42. SPIRIVA [Concomitant]
     Active Substance: TIOTROPIUM BROMIDE MONOHYDRATE
  43. SYMBICORT [Concomitant]
     Active Substance: BUDESONIDE\FORMOTEROL FUMARATE DIHYDRATE
  44. TRAMADOL HCL [Concomitant]
     Active Substance: TRAMADOL HYDROCHLORIDE
  45. TRAZODONE [Concomitant]
     Active Substance: TRAZODONE HYDROCHLORIDE
  46. TRETINOIN [Concomitant]
     Active Substance: TRETINOIN
  47. TRETINOIN [Concomitant]
     Active Substance: TRETINOIN
  48. WIXELA INHUB [Concomitant]
     Active Substance: FLUTICASONE PROPIONATE\SALMETEROL XINAFOATE
  49. ALBUTEROL SULFATE [Concomitant]
     Active Substance: ALBUTEROL SULFATE
  50. BUPROPION HYDROCHLORIDE [Concomitant]
     Active Substance: BUPROPION HYDROCHLORIDE
  51. DIETHYLPROPION HYDROCHLORIDE [Concomitant]
     Active Substance: DIETHYLPROPION HYDROCHLORIDE
  52. DOXYCYCLINE HYCLATE [Concomitant]
     Active Substance: DOXYCYCLINE HYCLATE
  53. ESOMEPRAZOLE MAGNESIUM [Concomitant]
     Active Substance: ESOMEPRAZOLE MAGNESIUM
  54. FLUZONE QUADRIVALENT NOS [Concomitant]
     Active Substance: INFLUENZA A VIRUS A/CALIFORNIA/7/2009 X-179A (H1N1) ANTIGEN (FORMALDEHYDE INACTIVATED)\INFLUENZA A V
  55. METHOCARBAMOL [Concomitant]
     Active Substance: METHOCARBAMOL
  56. METHYLPREDNISOLONE ACETATE [Concomitant]
     Active Substance: METHYLPREDNISOLONE ACETATE
  57. METHYLPREDNISOLONE [Concomitant]
     Active Substance: METHYLPREDNISOLONE
  58. MODERNA COVID-19 VACCINE [Concomitant]
     Active Substance: ELASOMERAN
  59. TOBRAMICINA + DEXAMETASONA [Concomitant]
  60. BUSPIRONE [Concomitant]
     Active Substance: BUSPIRONE HYDROCHLORIDE
  61. ROPINIROLE [Concomitant]
     Active Substance: ROPINIROLE
  62. ROPINIROLE [Concomitant]
     Active Substance: ROPINIROLE
  63. SERTRALINE [Concomitant]
     Active Substance: SERTRALINE HYDROCHLORIDE
  64. SERTRALINE [Concomitant]
     Active Substance: SERTRALINE HYDROCHLORIDE
  65. TRETINOIN [Concomitant]
     Active Substance: TRETINOIN
  66. BUPROPION HYDROCHLORIDE [Concomitant]
     Active Substance: BUPROPION HYDROCHLORIDE

REACTIONS (11)
  - Pain [Unknown]
  - Loss of personal independence in daily activities [Unknown]
  - Impaired quality of life [Unknown]
  - Infection [Unknown]
  - Nasal congestion [Unknown]
  - Upper respiratory tract infection [Unknown]
  - Back pain [Unknown]
  - Asthma [Unknown]
  - Drug ineffective [Unknown]
  - Arthralgia [Unknown]
  - Product use in unapproved indication [Unknown]

NARRATIVE: CASE EVENT DATE: 20210423
